FAERS Safety Report 12546495 (Version 4)
Quarter: 2016Q4

REPORT INFORMATION
  Report Type: Spontaneous
  Country: US (occurrence: US)
  Receive Date: 20160711
  Receipt Date: 20161007
  Transmission Date: 20170207
  Serious: Yes (Other)
  Sender: FDA-Public Use
  Company Number: US-PFIZER INC-2016312096

PATIENT
  Age: 86 Year
  Sex: Female

DRUGS (6)
  1. GABAPENTIN. [Suspect]
     Active Substance: GABAPENTIN
     Indication: PAIN
  2. GABAPENTIN. [Suspect]
     Active Substance: GABAPENTIN
     Indication: ARTHRITIS
  3. GABAPENTIN. [Suspect]
     Active Substance: GABAPENTIN
     Indication: MYALGIA
     Dosage: UNK, 3X/DAY
     Route: 048
     Dates: start: 2011
  4. GABAPENTIN. [Suspect]
     Active Substance: GABAPENTIN
     Indication: NEURALGIA
     Dosage: 100 MG, 1X/DAY
     Route: 048
     Dates: start: 20150618, end: 20150801
  5. GABAPENTIN. [Suspect]
     Active Substance: GABAPENTIN
     Indication: LUMBAR RADICULOPATHY
  6. GABAPENTIN. [Suspect]
     Active Substance: GABAPENTIN
     Indication: NEUROPATHY PERIPHERAL

REACTIONS (5)
  - Drug ineffective for unapproved indication [Recovered/Resolved]
  - Feeling abnormal [Unknown]
  - Pain in extremity [Unknown]
  - Suicidal ideation [Unknown]
  - Pain [Unknown]

NARRATIVE: CASE EVENT DATE: 2011
